FAERS Safety Report 17739550 (Version 1)
Quarter: 2020Q2

REPORT INFORMATION
  Report Type: Spontaneous
  Country: US (occurrence: US)
  Receive Date: 20200504
  Receipt Date: 20200504
  Transmission Date: 20200714
  Serious: No
  Sender: FDA-Public Use
  Company Number: US-GILEAD-2020-0462191

PATIENT
  Sex: Female

DRUGS (11)
  1. LISINOPRIL. [Concomitant]
     Active Substance: LISINOPRIL
  2. HYDROCHLOROTHIAZIDE. [Concomitant]
     Active Substance: HYDROCHLOROTHIAZIDE
  3. WELLBUTRIN [Concomitant]
     Active Substance: BUPROPION HYDROCHLORIDE
  4. OMEPRAZOLE. [Concomitant]
     Active Substance: OMEPRAZOLE
  5. ANORO ELLIPTA [Concomitant]
     Active Substance: UMECLIDINIUM BROMIDE\VILANTEROL TRIFENATATE
  6. SOFOSBUVIR;VELPATASVIR [Suspect]
     Active Substance: SOFOSBUVIR\VELPATASVIR
     Indication: CHRONIC HEPATITIS C
     Dosage: 1 DOSAGE FORM, QD
     Route: 048
     Dates: start: 202004
  7. VITAMIN D [COLECALCIFEROL] [Concomitant]
     Active Substance: CHOLECALCIFEROL
  8. POTASSIUM [Concomitant]
     Active Substance: POTASSIUM
  9. PAXIL [PIROXICAM] [Concomitant]
     Active Substance: PIROXICAM
  10. NORCO [Concomitant]
     Active Substance: ACETAMINOPHEN\HYDROCODONE BITARTRATE
  11. ALBUTEROL [SALBUTAMOL] [Concomitant]
     Active Substance: ALBUTEROL

REACTIONS (3)
  - Fatigue [Unknown]
  - Anxiety [Unknown]
  - Product dose omission [Recovered/Resolved]
